FAERS Safety Report 15359577 (Version 2)
Quarter: 2019Q1

REPORT INFORMATION
  Report Type: Spontaneous
  Country: US (occurrence: US)
  Receive Date: 20180907
  Receipt Date: 20190318
  Transmission Date: 20190417
  Serious: Yes (Death, Hospitalization, Other)
  Sender: FDA-Public Use
  Company Number: US-ASTRAZENECA-2018SF10061

PATIENT
  Age: 25030 Day
  Sex: Female
  Weight: 72.6 kg

DRUGS (75)
  1. ACETAMINOPHEN-CODEINE [Concomitant]
     Active Substance: ACETAMINOPHEN\CODEINE PHOSPHATE
     Indication: ANALGESIC THERAPY
     Dates: start: 2016, end: 2017
  2. ALCOHOL. [Concomitant]
     Active Substance: ALCOHOL
     Indication: DIABETES MELLITUS
     Dates: start: 2003, end: 2009
  3. CARVEDILOL. [Concomitant]
     Active Substance: CARVEDILOL
     Indication: HYPERTENSION
     Dates: start: 2012, end: 2016
  4. CEPHALEXIN. [Concomitant]
     Active Substance: CEPHALEXIN
     Indication: INFECTION
     Dates: start: 2005
  5. CIPROFLOXACIN HCL [Concomitant]
     Active Substance: CIPROFLOXACIN HYDROCHLORIDE
     Indication: INFECTION
     Dates: start: 2016
  6. CRESTOR [Concomitant]
     Active Substance: ROSUVASTATIN CALCIUM
     Indication: HYPERLIPIDAEMIA
     Dates: start: 2012, end: 2015
  7. HYDROCODONE-APAP [Concomitant]
     Active Substance: ACETAMINOPHEN\HYDROCODONE
  8. IBUPROFEN. [Concomitant]
     Active Substance: IBUPROFEN
  9. LANTUS [Concomitant]
     Active Substance: INSULIN GLARGINE
  10. METOLAZONE. [Concomitant]
     Active Substance: METOLAZONE
  11. NIFEDIPINE. [Concomitant]
     Active Substance: NIFEDIPINE
  12. PROCHLORPERAZINE. [Concomitant]
     Active Substance: PROCHLORPERAZINE
  13. PROMETHAZINE [Concomitant]
     Active Substance: PROMETHAZINE\PROMETHAZINE HYDROCHLORIDE
  14. SOTALOL. [Concomitant]
     Active Substance: SOTALOL
  15. SPIRONOLACTONE. [Concomitant]
     Active Substance: SPIRONOLACTONE
  16. TRAMADOL. [Concomitant]
     Active Substance: TRAMADOL
  17. WARFARIN [Concomitant]
     Active Substance: WARFARIN
  18. NEXIUM [Suspect]
     Active Substance: ESOMEPRAZOLE MAGNESIUM
     Indication: GASTROOESOPHAGEAL REFLUX DISEASE
     Dosage: GENERIC
     Route: 065
     Dates: start: 2017
  19. AMOX-CLAV [Concomitant]
     Active Substance: AMOXICILLIN\CLAVULANATE POTASSIUM
     Indication: INFECTION
     Dates: start: 2012, end: 2017
  20. CEPHALEXIN. [Concomitant]
     Active Substance: CEPHALEXIN
     Indication: INFECTION
     Dates: start: 2003
  21. CETIRIZINE [Concomitant]
     Active Substance: CETIRIZINE HYDROCHLORIDE
     Indication: HYPERSENSITIVITY
     Dates: start: 2012, end: 2013
  22. HUMALOG [Concomitant]
     Active Substance: INSULIN LISPRO
  23. LEVOFLOXACIN. [Concomitant]
     Active Substance: LEVOFLOXACIN
  24. MOXIFLOXACIN. [Concomitant]
     Active Substance: MOXIFLOXACIN
  25. NITROFURANTOIN. [Concomitant]
     Active Substance: NITROFURANTOIN
  26. NYSTATIN. [Concomitant]
     Active Substance: NYSTATIN
  27. PROAIR HFA [Concomitant]
     Active Substance: ALBUTEROL SULFATE
  28. TORSEMIDE. [Concomitant]
     Active Substance: TORSEMIDE
  29. NEXIUM [Suspect]
     Active Substance: ESOMEPRAZOLE MAGNESIUM
     Indication: GASTROOESOPHAGEAL REFLUX DISEASE
     Route: 048
     Dates: start: 2003, end: 2017
  30. ACYCLOVIR. [Concomitant]
     Active Substance: ACYCLOVIR
     Indication: ANALGESIC THERAPY
     Dates: start: 2015
  31. ASPIRIN. [Concomitant]
     Active Substance: ASPIRIN
     Indication: CHEST PAIN
     Dates: start: 2003, end: 2004
  32. DUREZOL [Concomitant]
     Active Substance: DIFLUPREDNATE
     Indication: EYE SWELLING
     Dates: start: 2013
  33. ETODOLAC. [Concomitant]
     Active Substance: ETODOLAC
     Indication: ANALGESIC THERAPY
     Dates: start: 2012
  34. FUROSEMIDE. [Concomitant]
     Active Substance: FUROSEMIDE
     Indication: FLUID RETENTION
     Dates: start: 2005, end: 2016
  35. HYDROXYZINE [Concomitant]
     Active Substance: HYDROXYZINE HYDROCHLORIDE
  36. METHOCARBAMOL. [Concomitant]
     Active Substance: METHOCARBAMOL
  37. METOPROLOL. [Concomitant]
     Active Substance: METOPROLOL
  38. MISOPROSTOL. [Concomitant]
     Active Substance: MISOPROSTOL
  39. MONTELUKAST [Concomitant]
     Active Substance: MONTELUKAST SODIUM
  40. NITROGLYCERIN. [Concomitant]
     Active Substance: NITROGLYCERIN
  41. VIGAMOX [Concomitant]
     Active Substance: MOXIFLOXACIN HYDROCHLORIDE
  42. ADVAIR DISKUS [Concomitant]
     Active Substance: FLUTICASONE PROPIONATE\SALMETEROL XINAFOATE
     Indication: CHRONIC OBSTRUCTIVE PULMONARY DISEASE
     Dates: start: 2013, end: 2017
  43. ALBUTEROL. [Concomitant]
     Active Substance: ALBUTEROL
     Indication: CHRONIC OBSTRUCTIVE PULMONARY DISEASE
     Dates: start: 2004, end: 2009
  44. CYCLOBENZAPRINE. [Concomitant]
     Active Substance: CYCLOBENZAPRINE
     Indication: BACK PAIN
     Dates: start: 2015, end: 2016
  45. DILTIAZEM. [Concomitant]
     Active Substance: DILTIAZEM
     Indication: HYPERTENSION
     Dates: start: 2004, end: 2008
  46. ENALAPRIL [Concomitant]
     Active Substance: ENALAPRIL
     Indication: HYPERTENSION
     Dates: start: 2003, end: 2008
  47. HUMULIN NOS [Concomitant]
     Active Substance: INSULIN HUMAN
  48. HYDRALAZINE [Concomitant]
     Active Substance: HYDRALAZINE HYDROCHLORIDE
  49. HYDROCHLOROTHIAZIDE. [Concomitant]
     Active Substance: HYDROCHLOROTHIAZIDE
  50. LOSARTAN POTASSIUM. [Concomitant]
     Active Substance: LOSARTAN POTASSIUM
  51. NITROSTAT [Concomitant]
     Active Substance: NITROGLYCERIN
  52. NEXIUM [Suspect]
     Active Substance: ESOMEPRAZOLE MAGNESIUM
     Indication: GASTROOESOPHAGEAL REFLUX DISEASE
     Route: 048
     Dates: start: 2012, end: 2016
  53. ATROVENT HFA [Concomitant]
     Active Substance: IPRATROPIUM BROMIDE
     Indication: CHRONIC OBSTRUCTIVE PULMONARY DISEASE
     Dates: start: 2014, end: 2015
  54. NEXIUM [Suspect]
     Active Substance: ESOMEPRAZOLE MAGNESIUM
     Indication: GASTROOESOPHAGEAL REFLUX DISEASE
     Route: 048
     Dates: start: 20130807
  55. ATORVASTATIN [Concomitant]
     Active Substance: ATORVASTATIN
     Indication: HYPERLIPIDAEMIA
     Dates: start: 2016
  56. DOXYCYCLINE. [Concomitant]
     Active Substance: DOXYCYCLINE
     Indication: INFECTION
     Dates: start: 2008
  57. GABAPENTIN. [Concomitant]
     Active Substance: GABAPENTIN
  58. LISINOPRIL. [Concomitant]
     Active Substance: LISINOPRIL
  59. SIMVASTATIN. [Concomitant]
     Active Substance: SIMVASTATIN
  60. AMLODIPINE BESYLATE. [Concomitant]
     Active Substance: AMLODIPINE BESYLATE
     Indication: HYPERTENSION
     Dates: start: 2012, end: 2017
  61. CLINDAMYCIN. [Concomitant]
     Active Substance: CLINDAMYCIN
     Indication: INFECTION
     Dates: start: 2013
  62. CYCLOBENZAPRINE. [Concomitant]
     Active Substance: CYCLOBENZAPRINE
     Indication: BACK PAIN
     Dates: start: 2004
  63. FLUTICASONE. [Concomitant]
     Active Substance: FLUTICASONE
     Indication: HYPERSENSITIVITY
     Dates: start: 2007, end: 2009
  64. IPRATROPIUM [Concomitant]
     Active Substance: IPRATROPIUM
  65. LORATADINE. [Concomitant]
     Active Substance: LORATADINE
  66. LORAZEPAM. [Concomitant]
     Active Substance: LORAZEPAM
  67. METRONIDAZOLE. [Concomitant]
     Active Substance: METRONIDAZOLE
  68. MOMETASONE [Concomitant]
     Active Substance: MOMETASONE
  69. OXYBUTYNIN. [Concomitant]
     Active Substance: OXYBUTYNIN CHLORIDE
  70. VENTOLIN [Concomitant]
     Active Substance: ALBUTEROL SULFATE
  71. VITAMIN D2 [Concomitant]
     Active Substance: ERGOCALCIFEROL
  72. NEXIUM [Suspect]
     Active Substance: ESOMEPRAZOLE MAGNESIUM
     Indication: GASTROOESOPHAGEAL REFLUX DISEASE
     Dosage: GENERIC
     Route: 065
     Dates: start: 2003, end: 2008
  73. HYDROCODONE-ACETAMINOPHEN [Concomitant]
     Active Substance: ACETAMINOPHEN\HYDROCODONE
  74. ISOSORBIDE. [Concomitant]
     Active Substance: ISOSORBIDE
  75. KLOR-CON [Concomitant]
     Active Substance: POTASSIUM CHLORIDE

REACTIONS (4)
  - Acute kidney injury [Unknown]
  - End stage renal disease [Unknown]
  - Chronic kidney disease [Unknown]
  - Acute respiratory failure [Fatal]

NARRATIVE: CASE EVENT DATE: 20160904
